FAERS Safety Report 10006248 (Version 1)
Quarter: 2014Q1

REPORT INFORMATION
  Report Type: Spontaneous
  Country: US (occurrence: US)
  Receive Date: 20140313
  Receipt Date: 20140313
  Transmission Date: 20141002
  Serious: Yes (Hospitalization)
  Sender: FDA-Public Use
  Company Number: US-BAYER-2014-037021

PATIENT
  Age: 49 Year
  Sex: Female
  Weight: 81.18 kg

DRUGS (4)
  1. YAZ [Suspect]
  2. VICODIN [Concomitant]
  3. CEFTRIAXONE [Concomitant]
  4. AZITHROMYCIN [Concomitant]

REACTIONS (1)
  - Pulmonary embolism [Recovered/Resolved]
